FAERS Safety Report 11874780 (Version 1)
Quarter: 2015Q4

REPORT INFORMATION
  Report Type: Report from Study
  Country: US (occurrence: US)
  Receive Date: 20151229
  Receipt Date: 20151229
  Transmission Date: 20160305
  Serious: Yes (Hospitalization)
  Sender: FDA-Public Use
  Company Number: PHEH2014US025774

PATIENT
  Age: 4 Year
  Sex: Female

DRUGS (1)
  1. TOBI [Suspect]
     Active Substance: TOBRAMYCIN
     Indication: NEOPLASM MALIGNANT
     Dosage: 300 MG/ 5 ML, BID
     Route: 055

REACTIONS (4)
  - Pneumothorax [Unknown]
  - Cardiac arrest [Unknown]
  - Neuroblastoma [Unknown]
  - Off label use [Unknown]

NARRATIVE: CASE EVENT DATE: 201403
